FAERS Safety Report 22822521 (Version 2)
Quarter: 2023Q4

REPORT INFORMATION
  Report Type: Spontaneous
  Country: JP (occurrence: JP)
  Receive Date: 20230815
  Receipt Date: 20231205
  Transmission Date: 20240110
  Serious: Yes (Hospitalization, Other)
  Sender: FDA-Public Use
  Company Number: JP-BRISTOL-MYERS SQUIBB COMPANY-2023-112546

PATIENT
  Age: 5 Decade
  Sex: Male

DRUGS (2)
  1. YERVOY [Suspect]
     Active Substance: IPILIMUMAB
     Indication: Renal cell carcinoma
     Route: 041
  2. OPDIVO [Suspect]
     Active Substance: NIVOLUMAB
     Indication: Renal cell carcinoma

REACTIONS (3)
  - Immune-mediated hepatic disorder [Recovering/Resolving]
  - Pyrexia [Unknown]
  - Immune-mediated thyroiditis [Recovering/Resolving]
